FAERS Safety Report 14536198 (Version 3)
Quarter: 2019Q2

REPORT INFORMATION
  Report Type: Spontaneous
  Country: FR (occurrence: FR)
  Receive Date: 20180215
  Receipt Date: 20190522
  Transmission Date: 20190711
  Serious: Yes (Hospitalization, Other)
  Sender: FDA-Public Use
  Company Number: FR-AUROBINDO-AUR-APL-2018-007001

PATIENT

DRUGS (29)
  1. JANUVIA [Suspect]
     Active Substance: SITAGLIPTIN PHOSPHATE
     Indication: PRODUCT USED FOR UNKNOWN INDICATION
     Dosage: ()
     Route: 048
  2. MOPRALPRO [Suspect]
     Active Substance: OMEPRAZOLE
     Indication: PRODUCT USED FOR UNKNOWN INDICATION
     Dosage: UNK ()
     Route: 048
  3. ORELOX [Suspect]
     Active Substance: CEFPODOXIME
     Dosage: UNK ()
     Route: 048
     Dates: start: 201501, end: 20150129
  4. JANUVIA [Suspect]
     Active Substance: SITAGLIPTIN PHOSPHATE
     Dosage: ()
     Route: 048
  5. ORELOX [Suspect]
     Active Substance: CEFPODOXIME
     Indication: PRODUCT USED FOR UNKNOWN INDICATION
     Dosage: ()
     Route: 048
  6. NEBILOX [Suspect]
     Active Substance: NEBIVOLOL HYDROCHLORIDE
     Dosage: ()
     Route: 048
  7. LEXOMIL [Suspect]
     Active Substance: BROMAZEPAM
     Dosage: STRENGTH: 12MG ()
     Route: 048
  8. DIAMICRON [Suspect]
     Active Substance: GLICLAZIDE
     Indication: TYPE 2 DIABETES MELLITUS
     Dosage: UNK ()
     Route: 048
  9. SPIRONOLACTONE. [Suspect]
     Active Substance: SPIRONOLACTONE
     Dosage: UNK ()
     Route: 048
  10. NEBILOX [Suspect]
     Active Substance: NEBIVOLOL HYDROCHLORIDE
     Dosage: UNK ()
     Route: 048
  11. IPERTEN [Suspect]
     Active Substance: MANIDIPINE
     Dosage: ()
     Route: 048
  12. NISIS [Suspect]
     Active Substance: VALSARTAN
     Dosage: UNK ()
     Route: 048
  13. LEXOMIL [Suspect]
     Active Substance: BROMAZEPAM
     Indication: PRODUCT USED FOR UNKNOWN INDICATION
     Dosage: 12 MG, UNK
     Route: 048
  14. MECIR [Suspect]
     Active Substance: TAMSULOSIN HYDROCHLORIDE
     Indication: PRODUCT USED FOR UNKNOWN INDICATION
     Dosage: UNK ()
     Route: 048
  15. MECIR [Suspect]
     Active Substance: TAMSULOSIN HYDROCHLORIDE
     Dosage: UNK ()
     Route: 048
  16. SPIRONOLACTONE. [Suspect]
     Active Substance: SPIRONOLACTONE
     Dosage: UNK ()
     Route: 048
  17. JANUVIA [Suspect]
     Active Substance: SITAGLIPTIN PHOSPHATE
     Dosage: UNK ()
     Route: 048
  18. NEBILOX [Suspect]
     Active Substance: NEBIVOLOL HYDROCHLORIDE
     Indication: PRODUCT USED FOR UNKNOWN INDICATION
     Dosage: UNK ()
     Route: 048
  19. FLUDEX (INDAPAMIDE) [Suspect]
     Active Substance: INDAPAMIDE
     Indication: PRODUCT USED FOR UNKNOWN INDICATION
     Dosage: UNK ()
     Route: 048
  20. IPERTEN [Suspect]
     Active Substance: MANIDIPINE
     Dosage: UNK ()
     Route: 048
  21. MECIR [Suspect]
     Active Substance: TAMSULOSIN HYDROCHLORIDE
     Dosage: ()
     Route: 048
  22. NISIS [Suspect]
     Active Substance: VALSARTAN
     Indication: PRODUCT USED FOR UNKNOWN INDICATION
     Dosage: ()
     Route: 048
  23. LEXOMIL [Suspect]
     Active Substance: BROMAZEPAM
     Dosage: 12 MG, UNK
     Route: 048
  24. DIAMICRON [Suspect]
     Active Substance: GLICLAZIDE
     Dosage: ()
     Route: 048
  25. SPIRONOLACTONE. [Suspect]
     Active Substance: SPIRONOLACTONE
     Indication: PRODUCT USED FOR UNKNOWN INDICATION
     Dosage: UNK ()
     Route: 048
  26. ORELOX [Suspect]
     Active Substance: CEFPODOXIME
     Dosage: ()
     Route: 048
  27. TEMESTA (LORAZEPAM) [Suspect]
     Active Substance: LORAZEPAM
     Indication: PRODUCT USED FOR UNKNOWN INDICATION
     Dosage: ()
     Route: 048
  28. IPERTEN [Suspect]
     Active Substance: MANIDIPINE
     Indication: PRODUCT USED FOR UNKNOWN INDICATION
     Dosage: ()
     Route: 048
  29. NISIS [Suspect]
     Active Substance: VALSARTAN
     Dosage: ()
     Route: 048

REACTIONS (2)
  - Dermatitis bullous [Recovered/Resolved]
  - Pemphigoid [Not Recovered/Not Resolved]

NARRATIVE: CASE EVENT DATE: 20150121
